FAERS Safety Report 12581330 (Version 1)
Quarter: 2016Q3

REPORT INFORMATION
  Report Type: Spontaneous
  Country: US (occurrence: US)
  Receive Date: 20160721
  Receipt Date: 20160721
  Transmission Date: 20161109
  Serious: No
  Sender: FDA-Public Use
  Company Number: US-009507513-1606USA014742

PATIENT
  Age: 81 Year
  Sex: Male
  Weight: 77.1 kg

DRUGS (4)
  1. ALDARA [Suspect]
     Active Substance: IMIQUIMOD
     Indication: BASAL CELL CARCINOMA
     Dosage: WEEKLY UNDER OCCLUSION, TO A 5 CM AREA OF THE ARM PROXIMAL TO THE ELBOW
     Route: 061
     Dates: start: 20130422, end: 20130530
  2. INTRON A [Suspect]
     Active Substance: INTERFERON ALFA-2B
     Indication: BASAL CELL CARCINOMA
     Dosage: 1 MILLION IU, INTALESIONALLY AT TH RIGHT ALAR  SURFACE OF NOSE
     Route: 026
     Dates: start: 20150205, end: 20150406
  3. INTRON A [Suspect]
     Active Substance: INTERFERON ALFA-2B
     Indication: SQUAMOUS CELL CARCINOMA
     Dosage: 1.5 MILLION IU, BIW INTRALESIONALLY AT THE RIGHT SIDEBURN AREA
     Route: 026
     Dates: start: 19950828, end: 19951003
  4. FLUOROURACIL. [Suspect]
     Active Substance: FLUOROURACIL
     Dosage: TOPICAL TREATMENT 5% FOR 3 WEEKS APPLIED 3 TIMES A DAY
     Route: 061
     Dates: start: 20150801, end: 20150821

REACTIONS (1)
  - Nephropathy [Unknown]

NARRATIVE: CASE EVENT DATE: 201501
